FAERS Safety Report 24291137 (Version 1)
Quarter: 2024Q3

REPORT INFORMATION
  Report Type: Spontaneous
  Country: US (occurrence: US)
  Receive Date: 20240906
  Receipt Date: 20240906
  Transmission Date: 20241016
  Serious: Yes (Other)
  Sender: UNITED THERAPEUTICS
  Company Number: US-UNITED THERAPEUTICS-UNT-2024-026915

PATIENT
  Age: 48 Year
  Sex: Female

DRUGS (10)
  1. REMODULIN [Suspect]
     Active Substance: TREPROSTINIL
     Indication: Heritable pulmonary arterial hypertension
     Dosage: 0.024 ?G/KG, CONTINUING
     Route: 041
  2. REMODULIN [Suspect]
     Active Substance: TREPROSTINIL
     Dosage: UNK, CONTINUING
     Route: 041
  3. SILDENAFIL [Suspect]
     Active Substance: SILDENAFIL
     Indication: Heritable pulmonary arterial hypertension
     Dosage: 20 MG, TID
  4. MACITENTAN [Suspect]
     Active Substance: MACITENTAN
     Indication: Heritable pulmonary arterial hypertension
     Dosage: 10 MG, QD
  5. METHIMAZOLE [Concomitant]
     Active Substance: METHIMAZOLE
     Indication: Hyperthyroidism
     Dosage: UNK, QD
  6. IRON [Concomitant]
     Active Substance: IRON
     Indication: Haemoglobin decreased
     Dosage: ROUTINE INFUSION
  7. OXYGEN [Concomitant]
     Active Substance: OXYGEN
     Indication: Oedema peripheral
     Dosage: UNK
  8. TADALAFIL [Concomitant]
     Active Substance: TADALAFIL
     Indication: Heritable pulmonary arterial hypertension
     Dosage: 40 MG, QD
  9. AMBRISENTAN [Concomitant]
     Active Substance: AMBRISENTAN
     Indication: Heritable pulmonary arterial hypertension
     Dosage: 10 MG, QD
  10. BEVACIZUMAB [Concomitant]
     Active Substance: BEVACIZUMAB
     Indication: Product used for unknown indication
     Dosage: 5 MG/KG, EVERY 2 WEEKS FOR SIX DOSES

REACTIONS (2)
  - Cardiac failure high output [Recovering/Resolving]
  - Epistaxis [Recovering/Resolving]
